FAERS Safety Report 15300683 (Version 1)
Quarter: 2018Q3

REPORT INFORMATION
  Report Type: Spontaneous
  Country: US (occurrence: US)
  Receive Date: 20180809
  Receipt Date: 20180809
  Transmission Date: 20181010
  Serious: Yes (Disabling)
  Sender: FDA-Public Use
  Company Number: None

PATIENT
  Age: 68 Year
  Sex: Female
  Weight: 101.25 kg

DRUGS (13)
  1. FLUOXETINE [Concomitant]
     Active Substance: FLUOXETINE HYDROCHLORIDE
  2. BENADRYL [Concomitant]
     Active Substance: DIPHENHYDRAMINE HYDROCHLORIDE
  3. MEMANTINE. [Concomitant]
     Active Substance: MEMANTINE
  4. TOPIRAMATE. [Concomitant]
     Active Substance: TOPIRAMATE
  5. VALACYCLOVIR [Concomitant]
     Active Substance: VALACYCLOVIR HYDROCHLORIDE
  6. IMODIUM [Concomitant]
     Active Substance: LOPERAMIDE HYDROCHLORIDE
  7. AMITRIPTYLINE [Concomitant]
     Active Substance: AMITRIPTYLINE
  8. GABAPENTIN. [Concomitant]
     Active Substance: GABAPENTIN
  9. SUMATRIPTAN. [Concomitant]
     Active Substance: SUMATRIPTAN
  10. GAMMAKED [Suspect]
     Active Substance: HUMAN IMMUNOGLOBULIN G
     Indication: HYPOGAMMAGLOBULINAEMIA
     Dosage: ?          OTHER FREQUENCY:ONCE A MONTH;OTHER ROUTE:IV PORT IN CHEST?
     Dates: start: 20170717, end: 20180619
  11. PROPRANOLOL [Concomitant]
     Active Substance: PROPRANOLOL HYDROCHLORIDE
  12. TIZANIDINE. [Concomitant]
     Active Substance: TIZANIDINE
  13. PEPTO?BISMOL [Concomitant]
     Active Substance: BISMUTH SUBSALICYLATE

REACTIONS (7)
  - Vomiting [None]
  - Pyrexia [None]
  - Drug hypersensitivity [None]
  - Headache [None]
  - Musculoskeletal stiffness [None]
  - Meningitis aseptic [None]
  - Therapy cessation [None]

NARRATIVE: CASE EVENT DATE: 20180416
